FAERS Safety Report 5070984-X (Version None)
Quarter: 2006Q3

REPORT INFORMATION
  Report Type: 
  Country: None (occurrence: None)
  Receive Date: 20060803
  Receipt Date: 20060803
  Transmission Date: 20061208
  Serious: Yes (Other)
  Sender: FDA-Public Use
  Company Number: None

PATIENT
  Age: 50 Year
  Sex: Female

DRUGS (1)
  1. KARIVA [Suspect]
     Indication: HAEMORRHAGE CONTROL
     Dosage: TAKE 1 TABLET CONTINUOUSLY NOT CYCLICALLY FOR BLEEDING CONTROL(DURATION:HAS BEEN TAKING BRAND FOR YR

REACTIONS (2)
  - HAEMORRHAGE [None]
  - PHARMACEUTICAL PRODUCT COMPLAINT [None]
